FAERS Safety Report 25817586 (Version 1)
Quarter: 2025Q3

REPORT INFORMATION
  Report Type: Spontaneous
  Country: CN (occurrence: CN)
  Receive Date: 20250918
  Receipt Date: 20250918
  Transmission Date: 20251020
  Serious: Yes (Death, Hospitalization, Other)
  Sender: UNITED THERAPEUTICS
  Company Number: CN-UNITED THERAPEUTICS-UNT-2025-031900

PATIENT
  Age: 2 Day
  Sex: Male

DRUGS (4)
  1. REMODULIN [Suspect]
     Active Substance: TREPROSTINIL
     Indication: Newborn persistent pulmonary hypertension
  2. NITRIC OXIDE [Suspect]
     Active Substance: NITRIC OXIDE
     Indication: Newborn persistent pulmonary hypertension
  3. NITRIC OXIDE [Suspect]
     Active Substance: NITRIC OXIDE
  4. PIPERACILLIN AND TAZOBACTAM [Concomitant]
     Active Substance: PIPERACILLIN SODIUM\TAZOBACTAM SODIUM
     Indication: Pseudomonas infection

REACTIONS (5)
  - Pulmonary hypertension [Fatal]
  - Right ventricular failure [Fatal]
  - Generalised oedema [Unknown]
  - Hepatosplenomegaly [Unknown]
  - Drug ineffective [Unknown]
